FAERS Safety Report 6842618-2 (Version None)
Quarter: 2010Q3

REPORT INFORMATION
  Report Type: 
  Country: None (occurrence: None)
  Receive Date: 20100714
  Receipt Date: 20070731
  Transmission Date: 20110219
  Serious: No
  Sender: FDA-Public Use
  Company Number: US-PFIZER INC-2007064348

PATIENT
  Sex: Female
  Weight: 47.6 kg

DRUGS (5)
  1. CHANTIX [Suspect]
     Indication: SMOKING CESSATION THERAPY
     Route: 048
     Dates: start: 20070701
  2. STOOL SOFTENER [Concomitant]
  3. VITAMINS [Concomitant]
  4. ANTIDEPRESSANTS [Concomitant]
  5. LEXAPRO [Concomitant]
     Indication: DEPRESSION

REACTIONS (3)
  - ABDOMINAL DISCOMFORT [None]
  - NAUSEA [None]
  - VOMITING [None]
